FAERS Safety Report 15356925 (Version 1)
Quarter: 2018Q3

REPORT INFORMATION
  Report Type: Spontaneous
  Country: US (occurrence: US)
  Receive Date: 20180906
  Receipt Date: 20180906
  Transmission Date: 20181010
  Serious: No
  Sender: FDA-Public Use
  Company Number: US-SA-2018SA242395

PATIENT
  Sex: Female

DRUGS (2)
  1. CAPZASIN HP ARTHRITIS PAIN RELIEF [Suspect]
     Active Substance: CAPSAICIN
     Dosage: UNK UNK, UNK
     Route: 065
  2. TROLAMINE SALICYLATE. [Suspect]
     Active Substance: TROLAMINE SALICYLATE
     Indication: PAIN
     Dosage: UNK UNK, UNK
     Route: 065

REACTIONS (3)
  - Hypoaesthesia eye [Unknown]
  - Application site pain [Unknown]
  - Burns second degree [Unknown]
